FAERS Safety Report 10683271 (Version 1)
Quarter: 2014Q4

REPORT INFORMATION
  Report Type: Spontaneous
  Country: US (occurrence: None)
  Receive Date: 20141229
  Receipt Date: 20141229
  Transmission Date: 20150529
  Serious: Yes (Other)
  Sender: FDA-Public Use
  Company Number: None

PATIENT
  Age: 75 Year
  Sex: Female
  Weight: 60.78 kg

DRUGS (2)
  1. ERGOCALCIFEROL. [Suspect]
     Active Substance: ERGOCALCIFEROL
     Indication: BLOOD CALCIUM DECREASED
     Route: 048
     Dates: start: 20140618, end: 20140630
  2. ERGOCALCIFEROL. [Suspect]
     Active Substance: ERGOCALCIFEROL
     Route: 048
     Dates: start: 20140618, end: 20140630

REACTIONS (8)
  - Muscular weakness [None]
  - Dysgeusia [None]
  - Poor quality sleep [None]
  - Pain [None]
  - Abasia [None]
  - Tinnitus [None]
  - Myalgia [None]
  - Bone pain [None]

NARRATIVE: CASE EVENT DATE: 20140630
